FAERS Safety Report 4592653-2 (Version None)
Quarter: 2005Q1

REPORT INFORMATION
  Report Type: 
  Country: None (occurrence: None)
  Receive Date: 20050218
  Receipt Date: 20050209
  Transmission Date: 20050727
  Serious: Yes (Hospitalization, Other)
  Sender: FDA-Public Use
  Company Number: A-CH2005-08679

PATIENT
  Age: 64 Year
  Sex: Female
  Weight: 50 kg

DRUGS (6)
  1. TRACLEER [Suspect]
     Indication: PULMONARY HYPERTENSION
     Dosage: 62.5 MG, BID, ORAL
     Route: 048
     Dates: start: 20041012
  2. PREDNISONE [Concomitant]
  3. AZATHIOPRINE [Concomitant]
  4. VITAMIN D [Concomitant]
  5. CALCIUM (CALCIUM) [Concomitant]
  6. LIQUIFILM (POLYVINYL ALCOHOL) [Concomitant]

REACTIONS (3)
  - ABDOMINAL HERNIA REPAIR [None]
  - DEEP VEIN THROMBOSIS [None]
  - OEDEMA PERIPHERAL [None]
